FAERS Safety Report 11383734 (Version 1)
Quarter: 2015Q3

REPORT INFORMATION
  Report Type: Report from Study
  Country: US (occurrence: US)
  Receive Date: 20150814
  Receipt Date: 20150814
  Transmission Date: 20151125
  Serious: Yes (Hospitalization, Other)
  Sender: FDA-Public Use
  Company Number: US-ABBVIE-15K-163-1432922-00

PATIENT
  Age: 60 Year
  Sex: Male
  Weight: 62.7 kg

DRUGS (1)
  1. HUMIRA [Suspect]
     Active Substance: ADALIMUMAB
     Indication: CROHN^S DISEASE
     Route: 058
     Dates: start: 20150525

REACTIONS (9)
  - Intestinal stenosis [Recovered/Resolved]
  - Nausea [Recovered/Resolved]
  - Faecal incontinence [Recovered/Resolved]
  - Abdominal distension [Recovered/Resolved]
  - Gastrointestinal oedema [Unknown]
  - Abdominal pain [Recovered/Resolved]
  - Protein total decreased [Unknown]
  - Haemoglobin decreased [Unknown]
  - Haematochezia [Recovered/Resolved]

NARRATIVE: CASE EVENT DATE: 201505
